FAERS Safety Report 19986493 (Version 3)
Quarter: 2022Q2

REPORT INFORMATION
  Report Type: Spontaneous
  Country: ES (occurrence: ES)
  Receive Date: 20211022
  Receipt Date: 20220622
  Transmission Date: 20220720
  Serious: Yes (Life-Threatening, Hospitalization, Disabling, Other)
  Sender: FDA-Public Use
  Company Number: ES-TEVA-2021-ES-1967611

PATIENT
  Age: 57 Year
  Sex: Female

DRUGS (4)
  1. TRAMADOL HYDROCHLORIDE [Suspect]
     Active Substance: TRAMADOL HYDROCHLORIDE
     Indication: Pain in extremity
     Dosage: 1 PULSE EVERY 6 HOURS
     Route: 048
  2. RIVOTRIL [Suspect]
     Active Substance: CLONAZEPAM
     Indication: Pain in extremity
     Dosage: 6 HOURS
     Route: 048
  3. TAPENTADOL [Suspect]
     Active Substance: TAPENTADOL
     Indication: Product used for unknown indication
     Route: 065
  4. FENTANYL [Suspect]
     Active Substance: FENTANYL
     Indication: Pain in extremity
     Route: 003

REACTIONS (14)
  - Drug dependence [Recovering/Resolving]
  - Near death experience [Recovering/Resolving]
  - Hallucination, visual [Recovered/Resolved]
  - Depression [Recovered/Resolved]
  - Drug use disorder [Recovering/Resolving]
  - Withdrawal syndrome [Recovered/Resolved]
  - Suicidal ideation [Recovered/Resolved]
  - Cognitive disorder [Recovered/Resolved]
  - Helplessness [Recovered/Resolved]
  - Contraindicated product administered [Unknown]
  - Cerebrovascular accident [Recovered/Resolved]
  - Renal pain [Unknown]
  - Hyperaesthesia [Not Recovered/Not Resolved]
  - Amnesia [Not Recovered/Not Resolved]
